FAERS Safety Report 15009698 (Version 1)
Quarter: 2018Q2

REPORT INFORMATION
  Report Type: Spontaneous
  Country: US (occurrence: US)
  Receive Date: 20180614
  Receipt Date: 20180614
  Transmission Date: 20180711
  Serious: No
  Sender: FDA-Public Use
  Company Number: US-ASTRAZENECA-2018SE66018

PATIENT
  Age: 753 Month
  Sex: Female
  Weight: 65.8 kg

DRUGS (10)
  1. CELEBREX [Concomitant]
     Active Substance: CELECOXIB
     Indication: ARTHRITIS
     Dosage: 200.0MG AS REQUIRED
     Route: 048
  2. ADVIL [Concomitant]
     Active Substance: IBUPROFEN
     Indication: PAIN
     Dosage: AS REQUIRED
     Route: 048
  3. LETROZOLE. [Concomitant]
     Active Substance: LETROZOLE
     Indication: BREAST CANCER
     Route: 048
     Dates: start: 2015
  4. CLARITIN [Concomitant]
     Active Substance: LORATADINE
     Indication: DUST ALLERGY
     Route: 048
     Dates: start: 2017
  5. AMBIEN [Concomitant]
     Active Substance: ZOLPIDEM TARTRATE
     Indication: SLEEP DISORDER
     Route: 048
     Dates: start: 2002
  6. TAGRISSO [Suspect]
     Active Substance: OSIMERTINIB
     Indication: NON-SMALL CELL LUNG CANCER
     Route: 048
     Dates: start: 20180503, end: 20180507
  7. ATORVASTATIN [Concomitant]
     Active Substance: ATORVASTATIN
     Indication: BLOOD CHOLESTEROL INCREASED
     Route: 048
     Dates: start: 2016
  8. LORAZEPAM. [Concomitant]
     Active Substance: LORAZEPAM
     Indication: ANXIETY
     Dosage: 0.5MG AS REQUIRED
     Route: 048
  9. BENADRYL TOPICAL CREAM [Concomitant]
     Indication: PRURITUS
     Dosage: AS REQUIRED
     Route: 061
  10. CELEBREX [Concomitant]
     Active Substance: CELECOXIB
     Indication: ARTHRALGIA
     Dosage: 200.0MG AS REQUIRED
     Route: 048

REACTIONS (16)
  - Pain [Unknown]
  - Skin discolouration [Recovered/Resolved]
  - Acne pustular [Not Recovered/Not Resolved]
  - Rash macular [Not Recovered/Not Resolved]
  - Oedema peripheral [Recovered/Resolved]
  - Pain in extremity [Unknown]
  - Scab [Unknown]
  - Urticaria [Unknown]
  - Musculoskeletal pain [Unknown]
  - Feeling hot [Recovering/Resolving]
  - Chills [Unknown]
  - Urticaria [Recovering/Resolving]
  - Pain in jaw [Unknown]
  - Rash pruritic [Recovering/Resolving]
  - Skin weeping [Recovered/Resolved]
  - Pruritus [Unknown]

NARRATIVE: CASE EVENT DATE: 201805
